FAERS Safety Report 13226897 (Version 1)
Quarter: 2017Q1

REPORT INFORMATION
  Report Type: Report from Study
  Country: US (occurrence: US)
  Receive Date: 20170213
  Receipt Date: 20170213
  Transmission Date: 20170428
  Serious: Yes (Other)
  Sender: FDA-Public Use
  Company Number: US-PFIZER INC-2017058580

PATIENT
  Sex: Male

DRUGS (2)
  1. BICALUTAMIDE. [Concomitant]
     Active Substance: BICALUTAMIDE
     Indication: PROSTATE CANCER
     Dosage: UNK (2 MONTHS BEFORE CHEMORADIATION AND CONTINUING 2 MONTHS CONCURRENTLY)
  2. DOCETAXEL. [Suspect]
     Active Substance: DOCETAXEL
     Indication: PROSTATE CANCER
     Dosage: 30 MG/M2, WEEKLY

REACTIONS (2)
  - Fatigue [Unknown]
  - Gastrointestinal toxicity [Unknown]
